FAERS Safety Report 4753267-4 (Version None)
Quarter: 2005Q3

REPORT INFORMATION
  Report Type: 
  Country: None (occurrence: None)
  Receive Date: 20050824
  Receipt Date: 20050804
  Transmission Date: 20060218
  Serious: Yes (Hospitalization)
  Sender: FDA-Public Use
  Company Number: HYPQ-PR-0507S-0003

PATIENT
  Age: 50 Year
  Sex: Male

DRUGS (1)
  1. HYPAQUE [Suspect]
     Indication: GASTROSTOMY FAILURE
     Dosage: 5 ML, SINGLE DOSE, I.P.
     Route: 033
     Dates: start: 20050627, end: 20050627

REACTIONS (5)
  - ACCIDENTAL EXPOSURE [None]
  - CANDIDIASIS [None]
  - ENTEROBACTER INFECTION [None]
  - IATROGENIC INJURY [None]
  - PERITONITIS [None]
